FAERS Safety Report 22161271 (Version 4)
Quarter: 2023Q4

REPORT INFORMATION
  Report Type: Report from Study
  Country: DE (occurrence: DE)
  Receive Date: 20230331
  Receipt Date: 20231027
  Transmission Date: 20240110
  Serious: Yes (Hospitalization, Other)
  Sender: FDA-Public Use
  Company Number: None

PATIENT
  Age: 33 Year
  Sex: Female
  Weight: 52 kg

DRUGS (72)
  1. TAVOR (LORAZEPAM) [Suspect]
     Active Substance: LORAZEPAM
     Indication: Agitation
     Dosage: 3 SEPARATED DOSES
     Route: 048
     Dates: start: 20011118, end: 20011202
  2. DIFLUCAN [Suspect]
     Active Substance: FLUCONAZOLE
     Indication: Candida infection
     Dosage: UNK
     Route: 042
     Dates: start: 20011118, end: 20011120
  3. DIFLUCAN [Suspect]
     Active Substance: FLUCONAZOLE
     Indication: Candida infection
  4. MIDAZOLAM HYDROCHLORIDE [Suspect]
     Active Substance: MIDAZOLAM HYDROCHLORIDE
     Indication: Pain
     Dosage: UNK
     Route: 048
     Dates: start: 20011113, end: 20011117
  5. SULFAMETHOXAZOLE\TRIMETHOPRIM [Suspect]
     Active Substance: SULFAMETHOXAZOLE\TRIMETHOPRIM
     Indication: Infection
     Dosage: 2 SEPARATED DOSES
     Route: 042
     Dates: start: 20011116, end: 20011120
  6. AMINO ACIDS, SOURCE UNSPECIFIED [Suspect]
     Active Substance: AMINO ACIDS, SOURCE UNSPECIFIED
     Indication: Parenteral nutrition
     Dosage: UNK
     Route: 042
     Dates: start: 20011124, end: 20011130
  7. HEPARIN SODIUM [Suspect]
     Active Substance: HEPARIN SODIUM
     Indication: Thrombosis prophylaxis
     Dosage: UNK
     Route: 042
     Dates: start: 20011126, end: 20011203
  8. EGG PHOSPHOLIPIDS\GLYCERIN\SOYBEAN OIL [Suspect]
     Active Substance: EGG PHOSPHOLIPIDS\GLYCERIN\SOYBEAN OIL
     Indication: Parenteral nutrition
     Dosage: DAILY, PRN.
     Route: 042
     Dates: start: 20011121, end: 20011205
  9. FOSFOMYCIN [Suspect]
     Active Substance: FOSFOMYCIN
     Indication: Infection
     Dosage: UNK
     Route: 042
     Dates: start: 20011130, end: 20011205
  10. NOVODIGAL (.BETA.-ACETYLDIGOXIN) [Suspect]
     Active Substance: .BETA.-ACETYLDIGOXIN
     Indication: Cardiac failure
     Dosage: 0.2 MG
     Route: 042
     Dates: start: 20011121, end: 20011202
  11. THEOPHYLLINE [Suspect]
     Active Substance: THEOPHYLLINE
     Indication: Bronchospasm
     Dosage: DOSE: 6 MG/HR.
     Route: 042
     Dates: start: 20011205
  12. URSODIOL [Suspect]
     Active Substance: URSODIOL
     Indication: Cholelithiasis
     Dosage: 3 SEPARATED DOSES
     Route: 048
     Dates: start: 20011123, end: 20011128
  13. CLAFORAN [Suspect]
     Active Substance: CEFOTAXIME SODIUM
     Indication: Infection
     Dosage: 6 G, 3 SEPARATED DOSES
     Route: 042
     Dates: start: 20011130, end: 20011201
  14. ACTRAPID [Suspect]
     Active Substance: INSULIN HUMAN
     Indication: Metabolic disorder
     Dosage: UNK
     Route: 042
     Dates: start: 20011124, end: 20011202
  15. LASIX [Suspect]
     Active Substance: FUROSEMIDE
     Indication: Oedema
     Dosage: DOSE: REPORTED AS 100. 2 SEPARATED DOSES
     Route: 042
     Dates: end: 20011126
  16. ORNITHINE ASPARTATE [Suspect]
     Active Substance: ORNITHINE ASPARTATE
     Indication: Liver disorder
     Dosage: 4 SEPARATED DOSES
     Route: 048
     Dates: start: 20011124, end: 20011128
  17. FERRLECIT [Suspect]
     Active Substance: SODIUM FERRIC GLUCONATE COMPLEX
     Indication: Iron deficiency
     Dosage: DAILY DOSE=1 AMPULE
     Route: 042
     Dates: start: 20011205, end: 20011205
  18. KETAMINE HYDROCHLORIDE [Suspect]
     Active Substance: KETAMINE HYDROCHLORIDE
     Indication: Stupor
     Dosage: UNK
     Route: 042
     Dates: start: 20011205, end: 20011205
  19. LACTULOSE [Suspect]
     Active Substance: LACTULOSE
     Indication: Constipation
     Dosage: 4 SEPARATED DOSES
     Route: 048
     Dates: start: 20011128, end: 20011205
  20. LAMICTAL [Suspect]
     Active Substance: LAMOTRIGINE
     Indication: Epilepsy
     Dosage: 12.5 MG
     Route: 048
     Dates: start: 20011112, end: 20011114
  21. LAMICTAL [Suspect]
     Active Substance: LAMOTRIGINE
     Dosage: 37.5 MG, 3 SEPARATED DOSES, DAILY
     Route: 048
     Dates: start: 20011118, end: 20011124
  22. NOVALGIN (METAMIZOLE SODIUM) [Suspect]
     Active Substance: METAMIZOLE SODIUM
     Indication: Pain
     Dosage: 2 G, AS NEEDED
     Route: 042
     Dates: start: 20011128, end: 20011202
  23. CIPROFLOXACIN [Suspect]
     Active Substance: CIPROFLOXACIN
     Indication: Infection
     Dosage: 400 MG, 2 SEPARATED DOSES
     Route: 042
     Dates: start: 20011121, end: 20011123
  24. NADROPARIN CALCIUM [Suspect]
     Active Substance: NADROPARIN CALCIUM
     Indication: Thrombosis prophylaxis
     Dosage: UNK, DAILY
     Route: 058
     Dates: start: 20011117, end: 20011124
  25. RANITIDINE HYDROCHLORIDE [Suspect]
     Active Substance: RANITIDINE HYDROCHLORIDE
     Indication: Prophylaxis
     Dosage: UNK
     Route: 042
     Dates: start: 20011123, end: 20011126
  26. CLONIDINE [Suspect]
     Active Substance: CLONIDINE
     Indication: Hypertension
     Dosage: UNIT DOSE=6 AMPULE
     Route: 042
     Dates: start: 20011205
  27. CLONAZEPAM [Suspect]
     Active Substance: CLONAZEPAM
     Indication: Epilepsy
     Dosage: PRN.
     Route: 048
     Dates: start: 20011112, end: 20011205
  28. AMOXICILLIN\CLAVULANATE POTASSIUM [Suspect]
     Active Substance: AMOXICILLIN\CLAVULANATE POTASSIUM
     Indication: Infection
     Dosage: 6.6 G, 3 SEPARATED DOSES
     Route: 042
     Dates: start: 20011121, end: 20011123
  29. SAB SIMPLEX [DIMETICONE] [Concomitant]
     Indication: Flatulence
     Dosage: 60 DROP, 3 SEPARATED DOSES
     Route: 048
     Dates: end: 20011120
  30. NOREPINEPHRINE HYDROCHLORIDE, (+/-)- [Concomitant]
     Active Substance: NOREPINEPHRINE HYDROCHLORIDE, (+/-)-
     Indication: Shock
     Dosage: UNK
     Route: 042
     Dates: start: 20011109, end: 20011203
  31. PROMETHAZINE HYDROCHLORIDE [Concomitant]
     Active Substance: PROMETHAZINE HYDROCHLORIDE
     Indication: Agitation
     Dosage: 150 MG, 6 SEPARATED DOSES
     Route: 042
     Dates: end: 20011111
  32. FERRO-FOLSAN PLUS [Concomitant]
     Indication: Iron deficiency
     Dosage: 40 DROP
     Route: 048
     Dates: end: 20011128
  33. POTASSIUM CHLORIDE [Concomitant]
     Active Substance: POTASSIUM CHLORIDE
     Indication: Metabolic disorder
     Dosage: UNK
     Route: 042
     Dates: end: 20011117
  34. POTASSIUM CHLORIDE [Concomitant]
     Active Substance: POTASSIUM CHLORIDE
     Dosage: UNK
     Route: 042
     Dates: end: 20011117
  35. CILASTATIN SODIUM\IMIPENEM [Concomitant]
     Active Substance: CILASTATIN SODIUM\IMIPENEM
     Indication: Infection
     Dosage: 3 SEPARATED DOSES
     Route: 042
     Dates: end: 20011113
  36. FENTANYL [Concomitant]
     Active Substance: FENTANYL\FENTANYL CITRATE
     Indication: Pain
     Dosage: 1.5 MG, DAILY DOSE=3 AMPULE, DAILY
     Route: 042
     Dates: start: 20011120, end: 20011120
  37. FENTANYL [Concomitant]
     Active Substance: FENTANYL\FENTANYL CITRATE
     Dosage: DOSE WAS ALSO REPORTED AS 1.5 MG. DAILY DOSE=3 AMPULE
     Route: 042
     Dates: start: 20011120, end: 20011120
  38. VANCOMYCIN [Concomitant]
     Active Substance: VANCOMYCIN
     Indication: Infection
     Dosage: 500 MG
     Route: 042
     Dates: end: 20011113
  39. DOBUTAMINE HYDROCHLORIDE [Concomitant]
     Active Substance: DOBUTAMINE HYDROCHLORIDE
     Indication: Cardiac failure
     Dosage: 250 MG
     Route: 042
     Dates: start: 20011121, end: 20011121
  40. MULTIBIONTA C [Concomitant]
     Indication: Hypovitaminosis
     Dosage: UNK
     Route: 042
     Dates: start: 20011205, end: 20011205
  41. IRON [Concomitant]
     Active Substance: IRON
     Indication: Iron deficiency
     Dosage: DOSE = 1 AMPULE
     Route: 042
     Dates: end: 20011116
  42. IRON [Concomitant]
     Active Substance: IRON
     Dosage: DOSE = 1 AMPULE
     Route: 042
     Dates: end: 20011116
  43. KETAMINE [Concomitant]
     Active Substance: KETAMINE
     Indication: Pain
     Dosage: UNK
     Route: 042
     Dates: start: 20011113, end: 20011117
  44. ALBUMIN HUMAN [Concomitant]
     Active Substance: ALBUMIN HUMAN
     Indication: Fluid replacement
     Dosage: 200 ML 100 ML TREATMENT WAS DISCONTINUED ON 16 NOV 2001.
     Dates: end: 20011116
  45. ALBUMIN HUMAN [Concomitant]
     Active Substance: ALBUMIN HUMAN
     Dosage: 200 ML TREATMENT WAS FROM 21 NOV 2001 TO 24 NOV 2+
     Route: 042
     Dates: start: 20011121, end: 20011124
  46. PANTOPRAZOLE SODIUM [Concomitant]
     Active Substance: PANTOPRAZOLE SODIUM
     Indication: Prophylaxis against gastrointestinal ulcer
     Dosage: UNK
     Route: 042
     Dates: end: 20011121
  47. KONAKION [Concomitant]
     Active Substance: PHYTONADIONE
     Indication: Vitamin K deficiency
     Dosage: DOSE WAS ALSO REPORTED AS 2 MG.
     Route: 042
     Dates: end: 20011113
  48. NYSTATIN [Concomitant]
     Active Substance: NYSTATIN
     Indication: Candida infection
     Dosage: FREQUENCY: SEVERAL TIMES A DAY.
     Route: 061
     Dates: end: 20011202
  49. NYSTATIN [Concomitant]
     Active Substance: NYSTATIN
     Dosage: FREQUENCY: SEVERAL TIMES A DAY.
     Dates: end: 20011202
  50. HEPARIN [Concomitant]
     Active Substance: HEPARIN SODIUM
     Indication: Thrombosis prophylaxis
     Dosage: UNK
     Route: 058
     Dates: start: 20011109, end: 20011109
  51. PREDNISOLONE [Concomitant]
     Active Substance: PREDNISOLONE
     Indication: Colitis ulcerative
     Dosage: UNK
     Route: 042
     Dates: end: 20011205
  52. PREDNISOLONE [Concomitant]
     Active Substance: PREDNISOLONE
     Dosage: UNK
     Route: 042
     Dates: end: 20011205
  53. VITAMIN B1 [Concomitant]
     Active Substance: THIAMINE HYDROCHLORIDE
     Indication: Vitamin B1 deficiency
     Dosage: 100 UNK, 2 SEPARATED DOSES, DAILY
     Route: 042
     Dates: end: 20011126
  54. VITAMIN B1 [Concomitant]
     Active Substance: THIAMINE HYDROCHLORIDE
     Dosage: DOSE: REPORTED AS 100. 2 SEPARATED DOSES
     Route: 042
     Dates: end: 20011126
  55. DEXTROSE [Concomitant]
     Active Substance: DEXTROSE\DEXTROSE MONOHYDRATE
     Indication: Fluid replacement
     Dosage: 5% AT 2000 ML / DAY, 40% AT 500 ML / DAY AND 70 % AT 2000 ML /DAY.
     Route: 042
     Dates: end: 20011205
  56. DEXTROSE [Concomitant]
     Active Substance: DEXTROSE\DEXTROSE MONOHYDRATE
     Indication: Fluid replacement
     Dosage: 5% AT 2000 ML / DAY, 40% AT 500 ML / DAY AND 70 % AT 2000 ML /DAY.
     Route: 042
     Dates: end: 20011205
  57. DEXTROSE\SODIUM CHLORIDE [Concomitant]
     Active Substance: DEXTROSE\SODIUM CHLORIDE
     Indication: Fluid replacement
     Dosage: UNK
     Route: 042
     Dates: end: 20011130
  58. DEXTROSE\SODIUM CHLORIDE [Concomitant]
     Active Substance: DEXTROSE\SODIUM CHLORIDE
     Indication: Fluid replacement
  59. METOCLOPRAMIDE HYDROCHLORIDE [Concomitant]
     Active Substance: METOCLOPRAMIDE HYDROCHLORIDE
     Indication: Nausea
     Dosage: DAILY DOSE=1 AMPULE
     Route: 042
     Dates: start: 20011113, end: 20011117
  60. VITINTRA [ERGOCALCIFEROL;PHYTOMENADIONE;RETINOL PALMITATE;TOCOPHEROL] [Concomitant]
     Indication: Parenteral nutrition
     Dosage: 1 DF, AS NEEDED1 AMPOULE PER DAY, PRN
     Route: 042
     Dates: start: 20011121, end: 20011205
  61. PIRITRAMIDE [Concomitant]
     Active Substance: PIRITRAMIDE
     Indication: Pain
     Dosage: 21 NOV 2001:3 MG, QDS WAS DISCONTINUED.05 DEC 2001: 3 MG, TID, PRN
     Route: 042
  62. XYLOMETAZOLINE HYDROCHLORIDE [Concomitant]
     Active Substance: XYLOMETAZOLINE HYDROCHLORIDE
     Indication: Nasopharyngitis
     Dosage: 3 SEPARATED DOSES
     Route: 045
     Dates: end: 20011130
  63. BRICANYL [Concomitant]
     Active Substance: TERBUTALINE SULFATE
     Indication: Respiratory tract congestion
     Dosage: 5 DF, AS NEEDED (FREQUENCY: PRN. UNIT DOSE=.5 AMPULE , AS NEEDED)
     Route: 042
     Dates: end: 20011112
  64. BRICANYL [Concomitant]
     Active Substance: TERBUTALINE SULFATE
     Indication: Obstructive airways disorder
     Dosage: 5 DF, AS NEEDED (FREQUENCY: PRN. UNIT DOSE=.5 AMPULE)
     Route: 042
     Dates: end: 20011112
  65. VALPROIC ACID [Concomitant]
     Active Substance: VALPROIC ACID
     Indication: Epilepsy
     Dosage: 2 SEPARATED DOSES
     Route: 042
     Dates: end: 20011115
  66. NUTRIFLEX LIPID [AMINO ACIDS NOS;CARBOHYDRATES NOS;ELECTROLYTES NOS;LI [Concomitant]
     Indication: Parenteral nutrition
     Dosage: UNK
     Route: 042
     Dates: end: 20011123
  67. AKINETON [Concomitant]
     Active Substance: BIPERIDEN HYDROCHLORIDE
     Indication: Extrapyramidal disorder
     Dosage: 2 SEPARATED DOSES
     Route: 042
     Dates: end: 20011113
  68. METRONIDAZOLE [Concomitant]
     Active Substance: METRONIDAZOLE
     Indication: Infection
     Dosage: 1500 MG
     Route: 042
     Dates: start: 20011115, end: 20011120
  69. CALCIUM [Concomitant]
     Active Substance: CALCIUM
     Indication: Calcium deficiency
     Dosage: 26 NOV 2001:10 ML / DAY OF 20% AMPOULE WAS DISCONTINUED. 05 DEC 2001: 1 AMPOULE OF+
     Route: 042
  70. CALCIUM [Concomitant]
     Active Substance: CALCIUM
     Dosage: 26 NOV 2001:10 ML / DAY OF 20% AMPOULE WAS DISCONTINUED. 05 DEC 2001: 1 AMPOULE OF+
     Route: 042
  71. ENALAPRIL MALEATE [Concomitant]
     Active Substance: ENALAPRIL MALEATE
     Indication: Cardiac failure
     Dosage: UNK
     Route: 048
     Dates: end: 20011202
  72. THIAMINE [THIAMINE HYDROCHLORIDE] [Concomitant]
     Indication: Vitamin B1 deficiency
     Dosage: UNK
     Route: 042
     Dates: end: 20011126

REACTIONS (3)
  - Toxic epidermal necrolysis [Recovered/Resolved]
  - Sepsis [Recovered/Resolved]
  - Stevens-Johnson syndrome [Recovered/Resolved]

NARRATIVE: CASE EVENT DATE: 20011128
